FAERS Safety Report 20011412 (Version 1)
Quarter: 2021Q4

REPORT INFORMATION
  Report Type: Report from Study
  Country: US (occurrence: US)
  Receive Date: 20211029
  Receipt Date: 20211029
  Transmission Date: 20220303
  Serious: Yes (Other)
  Sender: FDA-Public Use
  Company Number: US-MERCK HEALTHCARE KGAA-9275483

PATIENT
  Sex: Male

DRUGS (1)
  1. REBIF [Suspect]
     Active Substance: INTERFERON BETA-1A
     Indication: Multiple sclerosis
     Dosage: REBIF PRE-FILLED SYRINGE
     Route: 058
     Dates: start: 20020401

REACTIONS (4)
  - Meniere^s disease [Unknown]
  - Orthostatic hypotension [Unknown]
  - Multiple sclerosis [Unknown]
  - Dizziness [Unknown]
